FAERS Safety Report 9887733 (Version 3)
Quarter: 2014Q2

REPORT INFORMATION
  Report Type: Spontaneous
  Country: DE (occurrence: DE)
  Receive Date: 20140211
  Receipt Date: 20140402
  Transmission Date: 20141212
  Serious: Yes (Death)
  Sender: FDA-Public Use
  Company Number: DE-JNJFOC-20140204232

PATIENT
  Age: 70 Year
  Sex: Male
  Weight: 70 kg

DRUGS (5)
  1. XARELTO [Suspect]
     Indication: DEEP VEIN THROMBOSIS
     Route: 048
     Dates: end: 20131004
  2. XARELTO [Suspect]
     Indication: SELF-MEDICATION
     Route: 048
     Dates: end: 20131004
  3. XARELTO [Suspect]
     Indication: EMBOLISM VENOUS
     Route: 048
     Dates: end: 20131004
  4. BELOC ZOK [Concomitant]
     Indication: HYPERTENSION
     Route: 048
     Dates: end: 20131004
  5. DIGIMERCK [Concomitant]
     Indication: CARDIAC FAILURE
     Dosage: 1 DOSAGE IN THE MORNING
     Route: 048
     Dates: end: 20131004

REACTIONS (3)
  - Upper gastrointestinal haemorrhage [Fatal]
  - Resuscitation [Fatal]
  - Haematemesis [Fatal]
